FAERS Safety Report 8788739 (Version 1)
Quarter: 2012Q4

REPORT INFORMATION
  Report Type: 
  Country: FR (occurrence: FR)
  Receive Date: 20120917
  Receipt Date: 20120917
  Transmission Date: 20130627
  Serious: Yes (Other)
  Sender: FDA-Public Use
  Company Number: FR-AMGEN-FRASP2012057950

PATIENT

DRUGS (3)
  1. ENBREL [Suspect]
     Indication: PRODUCT USED FOR UNKNOWN INDICATION
     Dosage: UNK
     Dates: start: 201204
  2. ARAVA [Concomitant]
     Dosage: UNK UNK, UNK
  3. CORTANCYL [Concomitant]
     Dosage: UNK UNK, UNK

REACTIONS (1)
  - Pneumonia [Unknown]
